FAERS Safety Report 21920003 (Version 1)
Quarter: 2023Q1

REPORT INFORMATION
  Report Type: Spontaneous
  Country: BR (occurrence: BR)
  Receive Date: 20230127
  Receipt Date: 20230127
  Transmission Date: 20230418
  Serious: Yes (Hospitalization, Other)
  Sender: FDA-Public Use
  Company Number: BR-SUN PHARMACEUTICAL INDUSTRIES LTD-2023R1-374939

PATIENT
  Age: 38 Year
  Sex: Female

DRUGS (1)
  1. MESALAMINE [Suspect]
     Active Substance: MESALAMINE
     Indication: Colitis
     Dosage: 3.2 GRAM
     Route: 065

REACTIONS (4)
  - Disease recurrence [Unknown]
  - Sacroiliitis [Recovered/Resolved]
  - Venous thrombosis limb [Recovered/Resolved]
  - Pyoderma gangrenosum [Recovered/Resolved]
